FAERS Safety Report 7205207-6 (Version None)
Quarter: 2010Q4

REPORT INFORMATION
  Report Type: 
  Country: None (occurrence: None)
  Receive Date: 20101231
  Receipt Date: 20101220
  Transmission Date: 20110411
  Serious: Yes (Other)
  Sender: FDA-Public Use
  Company Number: 2007BI015662

PATIENT
  Sex: Female

DRUGS (2)
  1. AVONEX [Suspect]
     Indication: MULTIPLE SCLEROSIS
     Route: 030
     Dates: start: 20020405, end: 20071203
  2. AVONEX [Suspect]
     Route: 030

REACTIONS (4)
  - INFECTION [None]
  - LYMPHOMA [None]
  - PRESYNCOPE [None]
  - SARCOIDOSIS [None]
